FAERS Safety Report 4657925-1 (Version None)
Quarter: 2005Q2

REPORT INFORMATION
  Report Type: 
  Country: None (occurrence: None)
  Receive Date: 20050504
  Receipt Date: 20040617
  Transmission Date: 20051028
  Serious: Yes (Other)
  Sender: FDA-Public Use
  Company Number: 001833

PATIENT
  Sex: Female

DRUGS (2)
  1. CENESTIN [Suspect]
     Dosage: ORAL
     Route: 048
     Dates: end: 20010101
  2. PREMARIN [Suspect]
     Dosage: ORAL
     Route: 048
     Dates: end: 20000101

REACTIONS (1)
  - OVARIAN CANCER [None]
